FAERS Safety Report 6637813-1 (Version None)
Quarter: 2010Q1

REPORT INFORMATION
  Report Type: 
  Country: None (occurrence: None)
  Receive Date: 20100317
  Receipt Date: 20100304
  Transmission Date: 20100710
  Serious: Yes (Other)
  Sender: FDA-Public Use
  Company Number: PHEH2010US02721

PATIENT
  Sex: Female
  Weight: 54.875 kg

DRUGS (8)
  1. RECLAST [Suspect]
     Indication: OSTEOPOROSIS
     Dosage: 5 MG
     Dates: start: 20090224
  2. CALCIUM WITH VITAMIN D [Concomitant]
  3. MIRALAX [Concomitant]
  4. FLONASE [Concomitant]
     Dosage: 2 DF, QD
  5. NEXIUM [Concomitant]
     Route: 048
  6. SINEMET [Concomitant]
     Dosage: 25/100, 0.5 DF, QID
     Route: 048
  7. EXELON [Concomitant]
     Dosage: 9.5 MG / 24 HRS
     Route: 061
  8. LEXAPRO [Concomitant]
     Dosage: 5 MG, QD

REACTIONS (3)
  - BONE DISORDER [None]
  - OSTEONECROSIS [None]
  - SURGERY [None]
